FAERS Safety Report 8194189-9 (Version None)
Quarter: 2012Q1

REPORT INFORMATION
  Report Type: 
  Country: None (occurrence: None)
  Receive Date: 20120308
  Receipt Date: 20120305
  Transmission Date: 20120608
  Serious: No
  Sender: FDA-Public Use
  Company Number: US-BAYER-2012-022283

PATIENT
  Sex: Female

DRUGS (1)
  1. MIRENA [Suspect]
     Dosage: 20 MCG/24HR, CONT
     Dates: start: 20091022, end: 20091230

REACTIONS (5)
  - ABDOMINAL PAIN [None]
  - MOOD SWINGS [None]
  - GENITAL PAIN [None]
  - DYSMENORRHOEA [None]
  - NAUSEA [None]
